FAERS Safety Report 5517049-8 (Version None)
Quarter: 2007Q4

REPORT INFORMATION
  Report Type: 
  Country: None (occurrence: None)
  Receive Date: 20071114
  Receipt Date: 20070719
  Transmission Date: 20080405
  Serious: No
  Sender: FDA-Public Use
  Company Number: A0664719A

PATIENT
  Age: 50 Year
  Sex: Male

DRUGS (2)
  1. COMMIT [Suspect]
  2. UNSPECIFIED MEDICATION [Concomitant]

REACTIONS (7)
  - CHEST DISCOMFORT [None]
  - MALAISE [None]
  - NAUSEA [None]
  - NERVOUSNESS [None]
  - NICOTINE DEPENDENCE [None]
  - ORAL DISCOMFORT [None]
  - THROAT IRRITATION [None]
